FAERS Safety Report 17290664 (Version 2)
Quarter: 2020Q1

REPORT INFORMATION
  Report Type: Spontaneous
  Country: MA (occurrence: MA)
  Receive Date: 20200121
  Receipt Date: 20200326
  Transmission Date: 20200409
  Serious: Yes (Hospitalization, Other)
  Sender: FDA-Public Use
  Company Number: MA-ALEXION PHARMACEUTICALS INC.-A202000622

PATIENT
  Age: 40 Year
  Sex: Male

DRUGS (3)
  1. ORACILLIN                          /00001802/ [Concomitant]
     Active Substance: PENICILLIN V POTASSIUM
     Indication: PROPHYLAXIS
     Dosage: 2 MILLION IU, QD
     Route: 065
  2. SOLIRIS [Suspect]
     Active Substance: ECULIZUMAB
     Indication: PAROXYSMAL NOCTURNAL HAEMOGLOBINURIA
     Dosage: 600 MG, QW
     Route: 065
     Dates: start: 201408
  3. SOLIRIS [Suspect]
     Active Substance: ECULIZUMAB
     Dosage: 900 MG, Q2W
     Route: 065
     Dates: start: 201409

REACTIONS (25)
  - Hyperbilirubinaemia [Unknown]
  - Haemolytic anaemia [Unknown]
  - Neutropenia [Unknown]
  - Haptoglobin decreased [Unknown]
  - Chromaturia [Unknown]
  - Creatinine renal clearance decreased [Recovered/Resolved]
  - Cryoglobulinaemia [Unknown]
  - Mycoplasma test positive [Recovering/Resolving]
  - Chronic hepatitis C [Unknown]
  - Hepatocellular injury [Recovered/Resolved]
  - Haemolysis [Unknown]
  - Abdominal pain [Unknown]
  - Blood creatine phosphokinase increased [Unknown]
  - Pancytopenia [Unknown]
  - Reticulocytosis [Unknown]
  - Blood lactate dehydrogenase increased [Unknown]
  - Alanine aminotransferase increased [Unknown]
  - Condition aggravated [Unknown]
  - Fatigue [Not Recovered/Not Resolved]
  - Acute kidney injury [Unknown]
  - Myelodysplastic syndrome [Unknown]
  - Polyuria [Unknown]
  - Marrow hyperplasia [Unknown]
  - Jaundice [Unknown]
  - Aspartate aminotransferase increased [Unknown]

NARRATIVE: CASE EVENT DATE: 20160801
